FAERS Safety Report 9659833 (Version 1)
Quarter: 2013Q4

REPORT INFORMATION
  Report Type: Spontaneous
  Country: US (occurrence: US)
  Receive Date: 20131031
  Receipt Date: 20131031
  Transmission Date: 20140711
  Serious: Yes (Disabling)
  Sender: FDA-Public Use
  Company Number: US-ASTELLAS-2013US011163

PATIENT
  Age: 78 Year
  Sex: Female

DRUGS (7)
  1. MYRBETRIQ [Suspect]
     Indication: PRODUCT USED FOR UNKNOWN INDICATION
     Dosage: 25 MG, UID/QD
     Route: 048
     Dates: start: 20131017, end: 20131017
  2. FENTANYL [Concomitant]
     Indication: PAIN
     Dosage: APPLY TO SKIN EVERY 72 HOURS
     Route: 062
  3. CLONAZEPAM [Concomitant]
     Indication: PANIC ATTACK
     Dosage: 5 MG, UID/QD
     Route: 048
     Dates: start: 2011
  4. DIPHENHYDRAMINE [Concomitant]
     Indication: SLEEP DISORDER
     Dosage: 25 MG, UID/QD
     Route: 048
  5. ROPINIROLE [Concomitant]
     Indication: RESTLESS LEGS SYNDROME
     Dosage: 5 MG, QHS
     Route: 048
  6. UNSPECIFIED EYE DROPS [Concomitant]
     Indication: EYE DISORDER
     Dosage: 1 DROP IN EACH EYE DAILY
     Route: 047
  7. IBUPROFEN [Concomitant]
     Indication: PAIN
     Dosage: UNK
     Route: 048

REACTIONS (6)
  - Mobility decreased [Unknown]
  - Somnolence [Recovered/Resolved]
  - Feeling abnormal [Recovering/Resolving]
  - Nervousness [Recovering/Resolving]
  - Anxiety [Recovering/Resolving]
  - Headache [Recovering/Resolving]
